FAERS Safety Report 6516170-5 (Version None)
Quarter: 2009Q4

REPORT INFORMATION
  Report Type: 
  Country: None (occurrence: None)
  Receive Date: 20091223
  Receipt Date: 20091214
  Transmission Date: 20100525
  Serious: Yes (Hospitalization)
  Sender: FDA-Public Use
  Company Number: US-ABBOTT-09P-163-0611510-00

PATIENT
  Sex: Male
  Weight: 67.192 kg

DRUGS (8)
  1. HUMIRA [Suspect]
     Indication: CROHN'S DISEASE
     Dosage: DAY 1 LOADING DOSE
     Dates: start: 20091124, end: 20091124
  2. HUMIRA [Suspect]
     Dosage: 80MG DAY 15
     Dates: start: 20091124
  3. PREDNISONE [Concomitant]
     Indication: DRUG USE FOR UNKNOWN INDICATION
  4. TOPAMAX [Concomitant]
     Indication: DRUG USE FOR UNKNOWN INDICATION
  5. KLONOPIN [Concomitant]
     Indication: DRUG USE FOR UNKNOWN INDICATION
  6. SEROQUEL [Concomitant]
     Indication: DRUG USE FOR UNKNOWN INDICATION
  7. LEXAPRO [Concomitant]
     Indication: DRUG USE FOR UNKNOWN INDICATION
  8. TRAZODONE HCL [Concomitant]
     Indication: DRUG USE FOR UNKNOWN INDICATION

REACTIONS (12)
  - ABDOMINAL DISTENSION [None]
  - ABDOMINAL PAIN [None]
  - ANORECTAL DISCOMFORT [None]
  - BURNING SENSATION [None]
  - CONTUSION [None]
  - CROHN'S DISEASE [None]
  - DIARRHOEA [None]
  - DYSPNOEA [None]
  - HAEMATOCHEZIA [None]
  - HEADACHE [None]
  - PARAESTHESIA [None]
  - VOMITING [None]
